FAERS Safety Report 17949278 (Version 7)
Quarter: 2025Q3

REPORT INFORMATION
  Report Type: Spontaneous
  Country: US (occurrence: US)
  Receive Date: 20200626
  Receipt Date: 20250725
  Transmission Date: 20251020
  Serious: Yes (Other)
  Sender: GILEAD
  Company Number: US-GILEAD-2020-0475890

PATIENT
  Age: 46 Year
  Sex: Male

DRUGS (43)
  1. TRUVADA [Suspect]
     Active Substance: EMTRICITABINE\TENOFOVIR DISOPROXIL FUMARATE
     Indication: HIV infection
     Route: 048
     Dates: start: 200903, end: 201012
  2. TRUVADA [Suspect]
     Active Substance: EMTRICITABINE\TENOFOVIR DISOPROXIL FUMARATE
     Route: 048
     Dates: start: 20110101, end: 20150701
  3. TRUVADA [Suspect]
     Active Substance: EMTRICITABINE\TENOFOVIR DISOPROXIL FUMARATE
     Route: 048
     Dates: start: 20120131, end: 20141009
  4. TRUVADA [Suspect]
     Active Substance: EMTRICITABINE\TENOFOVIR DISOPROXIL FUMARATE
     Route: 048
     Dates: start: 20110101, end: 201112
  5. TRUVADA [Suspect]
     Active Substance: EMTRICITABINE\TENOFOVIR DISOPROXIL FUMARATE
     Route: 048
     Dates: start: 20120131, end: 20120705
  6. TRUVADA [Suspect]
     Active Substance: EMTRICITABINE\TENOFOVIR DISOPROXIL FUMARATE
     Route: 048
     Dates: start: 20141014, end: 20151115
  7. TRUVADA [Suspect]
     Active Substance: EMTRICITABINE\TENOFOVIR DISOPROXIL FUMARATE
     Route: 048
     Dates: start: 20151014, end: 20151117
  8. ATRIPLA [Suspect]
     Active Substance: EFAVIRENZ\EMTRICITABINE\TENOFOVIR DISOPROXIL FUMARATE
     Indication: HIV infection
     Route: 048
     Dates: start: 2012, end: 2014
  9. ATRIPLA [Suspect]
     Active Substance: EFAVIRENZ\EMTRICITABINE\TENOFOVIR DISOPROXIL FUMARATE
     Route: 048
     Dates: start: 200903, end: 201012
  10. VIREAD [Suspect]
     Active Substance: TENOFOVIR DISOPROXIL FUMARATE
     Indication: HIV infection
     Route: 048
     Dates: start: 2004, end: 201508
  11. STRIBILD [Suspect]
     Active Substance: COBICISTAT\ELVITEGRAVIR\EMTRICITABINE\TENOFOVIR DISOPROXIL FUMARATE
     Indication: HIV infection
     Route: 048
  12. BIKTARVY [Concomitant]
     Active Substance: BICTEGRAVIR SODIUM\EMTRICITABINE\TENOFOVIR ALAFENAMIDE FUMARATE
  13. GENVOYA [Concomitant]
     Active Substance: COBICISTAT\ELVITEGRAVIR\EMTRICITABINE\TENOFOVIR ALAFENAMIDE FUMARATE
  14. ACETAMINOPHEN [Concomitant]
     Active Substance: ACETAMINOPHEN
  15. AMITRIPTYLINE [Concomitant]
     Active Substance: AMITRIPTYLINE
  16. AMOXICILLIN [Concomitant]
     Active Substance: AMOXICILLIN
  17. ASPIRIN [Concomitant]
     Active Substance: ASPIRIN
  18. BACTRIM [Concomitant]
     Active Substance: SULFAMETHOXAZOLE\TRIMETHOPRIM
  19. FLOMAX [Concomitant]
     Active Substance: TAMSULOSIN HYDROCHLORIDE
  20. LASIX [Concomitant]
     Active Substance: FUROSEMIDE
  21. METHYLPREDNISOLONE [Concomitant]
     Active Substance: METHYLPREDNISOLONE
  22. OMEPRAZOLE [Concomitant]
     Active Substance: OMEPRAZOLE
  23. NORVIR [Concomitant]
     Active Substance: RITONAVIR
  24. REYATAZ [Concomitant]
     Active Substance: ATAZANAVIR SULFATE
  25. TRIUMEQ [Concomitant]
     Active Substance: ABACAVIR SULFATE\DOLUTEGRAVIR SODIUM\LAMIVUDINE
  26. ACETAMINOPHEN\OXYCODONE HYDROCHLORIDE\OXYCODONE TEREPHTHALATE [Concomitant]
     Active Substance: ACETAMINOPHEN\OXYCODONE HYDROCHLORIDE\OXYCODONE TEREPHTHALATE
  27. VALIUM [Concomitant]
     Active Substance: DIAZEPAM
  28. AMLODIPINE [Concomitant]
     Active Substance: AMLODIPINE BESYLATE
  29. LISINOPRIL [Concomitant]
     Active Substance: LISINOPRIL
  30. NIFEDIPINE [Concomitant]
     Active Substance: NIFEDIPINE
  31. HYDROCHLOROTHIAZIDE [Concomitant]
     Active Substance: HYDROCHLOROTHIAZIDE
  32. LABETALOL [Concomitant]
     Active Substance: LABETALOL
  33. IBUPROFEN [Concomitant]
     Active Substance: IBUPROFEN
  34. PRAVASTATIN [Concomitant]
     Active Substance: PRAVASTATIN
  35. MEDROL [Concomitant]
     Active Substance: METHYLPREDNISOLONE
  36. PREZISTA [Concomitant]
     Active Substance: DARUNAVIR ETHANOLATE
  37. LORATADINE [Concomitant]
     Active Substance: LORATADINE
  38. FLUCONAZOLE [Concomitant]
     Active Substance: FLUCONAZOLE
  39. OMEPRAZOLE [Concomitant]
     Active Substance: OMEPRAZOLE
  40. NEXIUM I.V. [Concomitant]
     Active Substance: ESOMEPRAZOLE SODIUM
  41. PYRIDIUM [Concomitant]
     Active Substance: PHENAZOPYRIDINE
  42. PYRIDOXINE [Concomitant]
     Active Substance: PYRIDOXINE
  43. CYANOCOBALAMIN [Concomitant]
     Active Substance: CYANOCOBALAMIN

REACTIONS (12)
  - Chronic kidney disease [Unknown]
  - Renal impairment [Unknown]
  - Renal injury [Unknown]
  - Renal failure [Unknown]
  - Acute kidney injury [Recovered/Resolved]
  - Skeletal injury [Unknown]
  - Glomerular filtration rate abnormal [Not Recovered/Not Resolved]
  - Blood creatinine increased [Recovered/Resolved]
  - Tooth fracture [Not Recovered/Not Resolved]
  - Decreased activity [Unknown]
  - Emotional distress [Unknown]
  - Pain [Unknown]

NARRATIVE: CASE EVENT DATE: 20150101
